FAERS Safety Report 4277858-2 (Version None)
Quarter: 2004Q1

REPORT INFORMATION
  Report Type: 
  Country: None (occurrence: None)
  Receive Date: 20040123
  Receipt Date: 20040115
  Transmission Date: 20041129
  Serious: Yes (Other)
  Sender: FDA-Public Use
  Company Number: PHEH2004US00869

PATIENT
  Age: 60 Year
  Sex: Male

DRUGS (3)
  1. DIOVAN HCT [Suspect]
     Indication: HYPERTENSION
     Dosage: ONE TABLET DAILY
     Route: 048
     Dates: start: 20030101
  2. TRILEPTAL [Suspect]
     Indication: BIPOLAR DISORDER
     Dosage: 600 MG, BID
     Route: 048
     Dates: start: 20030701
  3. WELLBUTRIN [Concomitant]
     Indication: DEPRESSION
     Dosage: UNK, UNK

REACTIONS (2)
  - EXTRASYSTOLES [None]
  - HEART RATE IRREGULAR [None]
